FAERS Safety Report 13592907 (Version 1)
Quarter: 2017Q2

REPORT INFORMATION
  Report Type: Spontaneous
  Country: US (occurrence: US)
  Receive Date: 20170530
  Receipt Date: 20170530
  Transmission Date: 20170830
  Serious: No
  Sender: FDA-Public Use
  Company Number: US-MYLANLABS-2016M1030874

PATIENT
  Age: 60 Year
  Sex: Male
  Weight: 58.96 kg

DRUGS (6)
  1. NO DRUG NAME [Concomitant]
     Indication: BENIGN PROSTATIC HYPERPLASIA
     Dosage: UNKNOWN
     Route: 048
  2. NO DRUG NAME [Concomitant]
     Indication: HYPERSENSITIVITY
     Dosage: 2 SPAYS EACH NOSTRIL
     Route: 045
  3. VALACICLOVIR HYDROCHLORIDE [Concomitant]
     Active Substance: VALACYCLOVIR HYDROCHLORIDE
     Indication: HERPES ZOSTER
     Dosage: 1000 MG, TID
     Route: 048
  4. ACYCLOVIR OINTMENT USP, 5% [Suspect]
     Active Substance: ACYCLOVIR
     Indication: HERPES ZOSTER
     Dosage: LITTLE DAB 4 TO 6 TIMES A DAY
     Route: 061
     Dates: start: 20120822
  5. ACYCLOVIR OINTMENT USP, 5% [Suspect]
     Active Substance: ACYCLOVIR
     Indication: OFF LABEL USE
  6. NO DRUG NAME [Concomitant]
     Indication: HYPERSENSITIVITY
     Dosage: 1 DROP EACH EYE
     Route: 047

REACTIONS (2)
  - Therapeutic response unexpected [Not Recovered/Not Resolved]
  - Off label use [Not Recovered/Not Resolved]

NARRATIVE: CASE EVENT DATE: 20120822
